FAERS Safety Report 18388771 (Version 1)
Quarter: 2020Q4

REPORT INFORMATION
  Report Type: Spontaneous
  Country: US (occurrence: US)
  Receive Date: 20201015
  Receipt Date: 20201015
  Transmission Date: 20210114
  Serious: No
  Sender: FDA-Public Use
  Company Number: US-GE HEALTHCARE LIFE SCIENCES-2020CSU003071

PATIENT
  Age: 76 Year
  Sex: Male
  Weight: 104.76 kg

DRUGS (3)
  1. VISIPAQUE [Suspect]
     Active Substance: IODIXANOL
     Indication: CARDIAC ABLATION
  2. VISIPAQUE [Suspect]
     Active Substance: IODIXANOL
     Indication: ATRIAL FIBRILLATION
  3. VISIPAQUE [Suspect]
     Active Substance: IODIXANOL
     Indication: ANGIOGRAM
     Dosage: 100 ML (AT FLOW RATE OF 5ML/SEC), SINGLE
     Route: 042
     Dates: start: 20200714, end: 20200714

REACTIONS (4)
  - Chest discomfort [Unknown]
  - Erythema [Unknown]
  - Dyspnoea [Unknown]
  - Swelling [Unknown]

NARRATIVE: CASE EVENT DATE: 20200715
